FAERS Safety Report 4759271-4 (Version None)
Quarter: 2005Q3

REPORT INFORMATION
  Report Type: 
  Country: None (occurrence: None)
  Receive Date: 20050826
  Receipt Date: 20050413
  Transmission Date: 20060218
  Serious: No
  Sender: FDA-Public Use
  Company Number: 243346

PATIENT
  Age: 51 Year
  Sex: Female
  Weight: 78 kg

DRUGS (7)
  1. VAGIFEM [Suspect]
     Indication: URINARY INCONTINENCE
     Dosage: 1 TAB,QD,VAGINAL
     Route: 067
     Dates: start: 20050328, end: 20050402
  2. REMERON [Concomitant]
  3. LISINOPRIL [Concomitant]
  4. PROTONIX [Concomitant]
  5. LOVASTATIN [Concomitant]
  6. ALLEGRA [Concomitant]
  7. OXYCONTIN [Concomitant]

REACTIONS (1)
  - HYPERSENSITIVITY [None]
